FAERS Safety Report 9337034 (Version 1)
Quarter: 2013Q2

REPORT INFORMATION
  Report Type: Report from Study
  Country: US (occurrence: US)
  Receive Date: 20130607
  Receipt Date: 20130607
  Transmission Date: 20140414
  Serious: Yes (Death)
  Sender: FDA-Public Use
  Company Number: US-ROCHE-1233827

PATIENT
  Sex: Male

DRUGS (1)
  1. HERCEPTIN [Suspect]
     Indication: SALIVARY GLAND NEOPLASM
     Route: 042

REACTIONS (1)
  - Death [Fatal]
